FAERS Safety Report 14501662 (Version 1)
Quarter: 2018Q1

REPORT INFORMATION
  Report Type: Spontaneous
  Country: US (occurrence: US)
  Receive Date: 20180206
  Receipt Date: 20180206
  Transmission Date: 20180509
  Serious: Yes (Life-Threatening, Hospitalization)
  Sender: FDA-Public Use
  Company Number: None

PATIENT
  Age: 17 Year

DRUGS (1)
  1. KRATOM [Suspect]
     Active Substance: MITRAGYNINE\HERBALS
     Indication: SUBSTANCE USE
     Dates: start: 20180203

REACTIONS (2)
  - Seizure [None]
  - Mydriasis [None]

NARRATIVE: CASE EVENT DATE: 20180203
